FAERS Safety Report 7459520-8 (Version None)
Quarter: 2011Q2

REPORT INFORMATION
  Report Type: 
  Country: None (occurrence: None)
  Receive Date: 20110426
  Receipt Date: 20110413
  Transmission Date: 20111010
  Serious: Yes (Other)
  Sender: FDA-Public Use
  Company Number: 029210

PATIENT
  Age: 78 Year
  Sex: Female

DRUGS (3)
  1. SULFASALAZINE [Concomitant]
  2. CERTOLIZUMAB (CERTOLIZUMAB) [Suspect]
     Indication: RHEUMATOID ARTHRITIS
     Dosage: (SUBCUTANEOUS)
     Route: 058
  3. HYDROXYCHLOROQUINE SULFATE [Concomitant]

REACTIONS (1)
  - MULTIPLE MYELOMA [None]
